FAERS Safety Report 7715795-9 (Version None)
Quarter: 2011Q3

REPORT INFORMATION
  Report Type: 
  Country: None (occurrence: None)
  Receive Date: 20110829
  Receipt Date: 20110829
  Transmission Date: 20111222
  Serious: Yes (Death, Life-Threatening, Hospitalization)
  Sender: FDA-Public Use
  Company Number: None

PATIENT
  Age: 72 Year
  Sex: Male
  Weight: 87.996 kg

DRUGS (2)
  1. PREDNISONE [Concomitant]
  2. SEROQUEL [Suspect]
     Indication: INITIAL INSOMNIA
     Dosage: 50MG
     Route: 048
     Dates: start: 20070801, end: 20110419

REACTIONS (34)
  - BLOOD CREATINE PHOSPHOKINASE INCREASED [None]
  - BACTERAEMIA [None]
  - DYSPNOEA [None]
  - HEADACHE [None]
  - PETECHIAE [None]
  - BLOOD GASES ABNORMAL [None]
  - CHRONIC OBSTRUCTIVE PULMONARY DISEASE [None]
  - NEUROLEPTIC MALIGNANT SYNDROME [None]
  - PULMONARY HAEMORRHAGE [None]
  - INTESTINAL OBSTRUCTION [None]
  - CARDIOVASCULAR DISORDER [None]
  - FUNGAL INFECTION [None]
  - RENAL FAILURE [None]
  - URINARY RETENTION [None]
  - CARDIAC DISORDER [None]
  - TACHYCARDIA [None]
  - DEEP VEIN THROMBOSIS [None]
  - ORAL HERPES [None]
  - PURPURA [None]
  - BRONCHIAL OBSTRUCTION [None]
  - ANGIOEDEMA [None]
  - VENTRICULAR TACHYCARDIA [None]
  - ATRIAL FIBRILLATION [None]
  - ELECTROCARDIOGRAM QT PROLONGED [None]
  - TORSADE DE POINTES [None]
  - IMMUNE SYSTEM DISORDER [None]
  - RESPIRATORY TRACT INFECTION [None]
  - PAIN [None]
  - MYOCARDIAL INFARCTION [None]
  - CARDIAC FAILURE CONGESTIVE [None]
  - ABDOMINAL DISTENSION [None]
  - HYPOTENSION [None]
  - HYPERTENSION [None]
  - PNEUMONIA ASPIRATION [None]
